FAERS Safety Report 12765293 (Version 1)
Quarter: 2016Q3

REPORT INFORMATION
  Report Type: Spontaneous
  Country: US (occurrence: US)
  Receive Date: 20160921
  Receipt Date: 20160921
  Transmission Date: 20161109
  Serious: No
  Sender: FDA-Public Use
  Company Number: US-PFIZER INC-2016436475

PATIENT
  Age: 70 Year
  Sex: Female

DRUGS (2)
  1. IBRANCE [Suspect]
     Active Substance: PALBOCICLIB
     Dosage: 100 MG, UNK
     Dates: start: 20160904
  2. LETROZOLE. [Concomitant]
     Active Substance: LETROZOLE
     Dosage: 3 DF, 1X/DAY
     Dates: start: 20160911

REACTIONS (1)
  - Back pain [Recovered/Resolved]
